FAERS Safety Report 8091608-3 (Version None)
Quarter: 2012Q1

REPORT INFORMATION
  Report Type: 
  Country: None (occurrence: None)
  Receive Date: 20120131
  Receipt Date: 20120128
  Transmission Date: 20120608
  Serious: Yes (Other)
  Sender: FDA-Public Use
  Company Number: US-PFIZER INC-2012023627

PATIENT
  Sex: Female
  Weight: 78.912 kg

DRUGS (3)
  1. ALBUTEROL SULFATE [Concomitant]
     Dosage: UNK, ONCE DAILY
     Route: 055
  2. ALBUTEROL SULFATE [Concomitant]
     Indication: DYSPNOEA
     Dosage: UNK, 3 TIMES A DAY
     Route: 055
  3. CHANTIX [Suspect]
     Indication: SMOKING CESSATION THERAPY
     Dosage: UNK
     Route: 048
     Dates: start: 20120114

REACTIONS (4)
  - PANIC ATTACK [None]
  - TREMOR [None]
  - FEELING JITTERY [None]
  - IRRITABILITY [None]
